FAERS Safety Report 20829896 (Version 1)
Quarter: 2022Q2

REPORT INFORMATION
  Report Type: Spontaneous
  Country: TW (occurrence: TW)
  Receive Date: 20220513
  Receipt Date: 20220513
  Transmission Date: 20220720
  Serious: Yes (Hospitalization, Other)
  Sender: FDA-Public Use
  Company Number: TW-STRIDES ARCOLAB LIMITED-2022SP005464

PATIENT
  Age: 27 Year
  Sex: Female

DRUGS (4)
  1. PREDNISOLONE [Suspect]
     Active Substance: PREDNISOLONE
     Indication: Thrombocytopenia
     Dosage: UNK
     Route: 065
  2. PREDNISOLONE [Suspect]
     Active Substance: PREDNISOLONE
     Dosage: 40 MILLIGRAM/DAY
     Route: 048
  3. RITUXIMAB [Suspect]
     Active Substance: RITUXIMAB
     Indication: Thrombocytopenia
     Dosage: 100 MILLIGRAM, ONCE A WEEK
     Route: 065
  4. BETAMETHASONE [Suspect]
     Active Substance: BETAMETHASONE
     Indication: Drug therapy
     Dosage: 2 DOSAGE FORM, EVERY 12 HRS (12MG TWO DOSES IN 24H)
     Route: 051

REACTIONS (5)
  - Central obesity [Unknown]
  - Drug ineffective [Unknown]
  - Cushingoid [Unknown]
  - Weight increased [Unknown]
  - Maternal exposure during pregnancy [Unknown]
